FAERS Safety Report 4744078-4 (Version None)
Quarter: 2005Q3

REPORT INFORMATION
  Report Type: 
  Country: None (occurrence: None)
  Receive Date: 20050812
  Receipt Date: 20050804
  Transmission Date: 20060218
  Serious: Yes (Hospitalization)
  Sender: FDA-Public Use
  Company Number: PHEH2005US08747

PATIENT
  Age: 64 Year
  Sex: Female

DRUGS (2)
  1. ZOMETA [Suspect]
     Indication: METASTASES TO BONE
     Dosage: 4 MG, Q 4 WEEKS
     Route: 042
     Dates: start: 20030101, end: 20050805
  2. PAMIDRONATE DISODIUM [Suspect]
     Indication: METASTASES TO BONE
     Dosage: 90 MG, Q 4 WEEK
     Route: 042
     Dates: start: 20000101, end: 20030101

REACTIONS (2)
  - EXOSTOSIS [None]
  - ORAL SURGERY [None]
